FAERS Safety Report 19751743 (Version 3)
Quarter: 2021Q4

REPORT INFORMATION
  Report Type: Spontaneous
  Country: FR (occurrence: FR)
  Receive Date: 20210827
  Receipt Date: 20211126
  Transmission Date: 20220303
  Serious: Yes (Other)
  Sender: FDA-Public Use
  Company Number: FR-BRISTOL-MYERS SQUIBB COMPANY-BMS-2021-084240

PATIENT
  Age: 62 Year
  Sex: Female

DRUGS (3)
  1. ELIQUIS [Suspect]
     Active Substance: APIXABAN
     Indication: Deep vein thrombosis
     Dosage: 5 MILLIGRAM, BID
     Route: 065
     Dates: start: 202004, end: 202109
  2. ELIQUIS [Suspect]
     Active Substance: APIXABAN
     Indication: Pulmonary embolism
  3. FLUINDIONE [Concomitant]
     Active Substance: FLUINDIONE
     Indication: Product used for unknown indication
     Route: 065

REACTIONS (17)
  - Dizziness [Unknown]
  - Headache [Unknown]
  - Back pain [Unknown]
  - Fatigue [Not Recovered/Not Resolved]
  - Lethargy [Unknown]
  - Dyspnoea [Not Recovered/Not Resolved]
  - Muscular weakness [Unknown]
  - Insomnia [Unknown]
  - Alopecia [Unknown]
  - Abdominal distension [Unknown]
  - Weight increased [Unknown]
  - Dry eye [Unknown]
  - Vision blurred [Unknown]
  - Type 2 diabetes mellitus [Unknown]
  - Loss of consciousness [Unknown]
  - Coagulation factor V level abnormal [Unknown]
  - Burning sensation [Recovered/Resolved]
